FAERS Safety Report 8470902-8 (Version None)
Quarter: 2012Q2

REPORT INFORMATION
  Report Type: 
  Country: None (occurrence: None)
  Receive Date: 20120627
  Receipt Date: 20120615
  Transmission Date: 20120825
  Serious: Yes (Other)
  Sender: FDA-Public Use
  Company Number: FI-BRISTOL-MYERS SQUIBB COMPANY-16707523

PATIENT
  Age: 65 Year
  Sex: Male

DRUGS (8)
  1. RAMIPRIL [Concomitant]
  2. WARFARIN SODIUM [Concomitant]
  3. PREDNISOLONE [Concomitant]
  4. ORENCIA [Suspect]
     Indication: RHEUMATOID ARTHRITIS
     Dosage: SUBSEQUENT INF: 05JAN2012, 2FEB2012
     Dates: start: 20111121, end: 20120329
  5. FUROSEMIDE [Concomitant]
  6. OXIKLORIN [Concomitant]
  7. KERLON [Concomitant]
  8. SULFASALAZINE [Concomitant]
     Dosage: ALSO TAKEN 1 MG WEEKLY

REACTIONS (3)
  - PULMONARY EMBOLISM [None]
  - ANKLE FRACTURE [None]
  - SYNCOPE [None]
